FAERS Safety Report 4925205-2 (Version None)
Quarter: 2006Q1

REPORT INFORMATION
  Report Type: 
  Country: None (occurrence: None)
  Receive Date: 20060228
  Receipt Date: 20060127
  Transmission Date: 20060701
  Serious: No
  Sender: FDA-Public Use
  Company Number: US-GLAXOSMITHKLINE-A0591263A

PATIENT
  Age: 77 Year
  Sex: Male

DRUGS (13)
  1. AVODART [Suspect]
     Indication: BENIGN PROSTATIC HYPERPLASIA
     Dosage: .5MG PER DAY
     Route: 048
     Dates: start: 20060120
  2. FLOMAX [Concomitant]
  3. SENNA [Concomitant]
  4. CELEXA [Concomitant]
  5. NEXIUM [Concomitant]
  6. ATIVAN [Concomitant]
  7. ALBUTEROL [Concomitant]
  8. FLEET ENEMA [Concomitant]
  9. DULCOLAX [Concomitant]
  10. MILK OF MAGNESIA TAB [Concomitant]
  11. SELENIUM SHAMPOO [Concomitant]
  12. DUONEB [Concomitant]
  13. TYLENOL (CAPLET) [Concomitant]

REACTIONS (1)
  - DRUG ADMINISTRATION ERROR [None]
